FAERS Safety Report 15674467 (Version 4)
Quarter: 2019Q1

REPORT INFORMATION
  Report Type: Spontaneous
  Country: JP (occurrence: JP)
  Receive Date: 20181130
  Receipt Date: 20190211
  Transmission Date: 20190417
  Serious: Yes (Other)
  Sender: FDA-Public Use
  Company Number: JP-BRISTOL-MYERS SQUIBB COMPANY-BMS-2018-112773

PATIENT
  Age: 48 Year
  Sex: Male
  Weight: 76.9 kg

DRUGS (4)
  1. OPDIVO [Suspect]
     Active Substance: NIVOLUMAB
     Indication: PRODUCT USED FOR UNKNOWN INDICATION
     Dosage: 240 MG, Q2W
     Route: 041
     Dates: start: 20181002
  2. OPDIVO [Suspect]
     Active Substance: NIVOLUMAB
     Indication: METASTATIC RENAL CELL CARCINOMA
     Dosage: 230 MG, Q2W
     Route: 041
     Dates: start: 20171010, end: 20180918
  3. DECADRON [Suspect]
     Active Substance: DEXAMETHASONE
     Indication: OEDEMA
     Dosage: 4 MG, QD
     Route: 065
     Dates: start: 20180220, end: 20180320
  4. DECADRON [Suspect]
     Active Substance: DEXAMETHASONE
     Indication: PRODUCT USED FOR UNKNOWN INDICATION
     Dosage: 1 MG, QD
     Route: 065
     Dates: start: 20180321, end: 20180403

REACTIONS (6)
  - Insomnia [Not Recovered/Not Resolved]
  - Vertebral foraminal stenosis [Not Recovered/Not Resolved]
  - Fall [Recovered/Resolved]
  - Scapula fracture [Recovered/Resolved]
  - Folliculitis [Recovering/Resolving]
  - Oedema [Recovered/Resolved]

NARRATIVE: CASE EVENT DATE: 20171012
